FAERS Safety Report 23553535 (Version 1)
Quarter: 2024Q1

REPORT INFORMATION
  Report Type: Spontaneous
  Country: IT (occurrence: IT)
  Receive Date: 20240222
  Receipt Date: 20240222
  Transmission Date: 20240409
  Serious: Yes (Hospitalization, Other)
  Sender: FDA-Public Use
  Company Number: None

PATIENT
  Age: 22 Year
  Sex: Female
  Weight: 50 kg

DRUGS (1)
  1. ACETAMINOPHEN [Suspect]
     Active Substance: ACETAMINOPHEN
     Indication: Dysmenorrhoea
     Dosage: 7 X 1-GRAM TABLETS IN A SINGLE DOSE
     Route: 048
     Dates: start: 20231018

REACTIONS (4)
  - Vomiting [Recovered/Resolved]
  - Overdose [Unknown]
  - Drug abuse [Unknown]
  - Nausea [Recovered/Resolved]

NARRATIVE: CASE EVENT DATE: 20231018
